FAERS Safety Report 9170418 (Version 5)
Quarter: 2013Q2

REPORT INFORMATION
  Report Type: Spontaneous
  Country: JP (occurrence: None)
  Receive Date: 20130312
  Receipt Date: 20130627
  Transmission Date: 20140414
  Serious: Yes (Hospitalization)
  Sender: FDA-Public Use
  Company Number: TCI2013A01151

PATIENT
  Age: 80 Year
  Sex: Male

DRUGS (8)
  1. NESINA [Suspect]
     Indication: TYPE 2 DIABETES MELLITUS
     Route: 048
     Dates: start: 20111023, end: 20130222
  2. BASEN TABLET 0.3 [Concomitant]
  3. EXFORGE [Concomitant]
  4. ROSUVASTATIN CALCIUM [Concomitant]
  5. HALFDIGOXIN-KY (DIGOXIN) [Concomitant]
  6. ASVERIN (TIPEPIDINE HIBENZATE) [Concomitant]
  7. EMPYNASE P (PRONASE) [Concomitant]
  8. TRANSAMIN (TRANEXAMIC ACID) [Concomitant]

REACTIONS (6)
  - Malaise [None]
  - Organising pneumonia [None]
  - Renal cyst [None]
  - Nephrolithiasis [None]
  - Calculus bladder [None]
  - Bronchiectasis [None]
